FAERS Safety Report 6916134 (Version 3)
Quarter: 2020Q4

REPORT INFORMATION
  Report Type: Spontaneous
  Country: AU (occurrence: AU)
  Receive Date: 20090223
  Receipt Date: 20201229
  Transmission Date: 20210114
  Serious: Yes (Other)
  Sender: FDA-Public Use
  Company Number: PHBS2009AU00810

PATIENT
  Age: 30 Year
  Sex: Male

DRUGS (3)
  1. RIFAMPICIN [Suspect]
     Active Substance: RIFAMPIN
     Indication: LEPROSY
     Dosage: 600 MG, QMO
     Route: 065
  2. DAPSONE. [Suspect]
     Active Substance: DAPSONE
     Indication: LEPROSY
     Dosage: 100 MG, QD
     Route: 065
  3. CLOFAZIMINE [Suspect]
     Active Substance: CLOFAZIMINE
     Indication: LEPROSY
     Dosage: 50 MG, QD
     Route: 065

REACTIONS (6)
  - Type IV hypersensitivity reaction [Unknown]
  - Skin induration [Unknown]
  - Granuloma [Unknown]
  - Erythema [Unknown]
  - Tuberculoid leprosy [Unknown]
  - Skin plaque [Unknown]
